FAERS Safety Report 18711845 (Version 1)
Quarter: 2021Q1

REPORT INFORMATION
  Report Type: Spontaneous
  Country: US (occurrence: US)
  Receive Date: 20210107
  Receipt Date: 20210107
  Transmission Date: 20210419
  Serious: Yes (Hospitalization)
  Sender: FDA-Public Use
  Company Number: None

PATIENT
  Age: 48 Year
  Sex: Male
  Weight: 84.82 kg

DRUGS (7)
  1. RITUXIMAB (MOAB C2B8 ANTI CD20, CHIMERIC) 1580 MG [Suspect]
     Active Substance: RITUXIMAB
     Dates: end: 20180710
  2. DAUNORUBICIN?220 MG [Suspect]
     Active Substance: DAUNORUBICIN HYDROCHLORIDE
     Dates: end: 20180714
  3. VINCRISTINE SULFATE 200 ML [Suspect]
     Active Substance: VINCRISTINE SULFATE
     Dates: end: 20180714
  4. CYTARABINE 70 MG [Suspect]
     Active Substance: CYTARABINE
     Dates: end: 20180623
  5. DEXAMETHASONE 280 MG [Suspect]
     Active Substance: DEXAMETHASONE
     Dates: end: 20180713
  6. ONCASPAR [Suspect]
     Active Substance: PEGASPARGASE
     Dates: end: 20180707
  7. METHOTREXATE?12.5 MG [Suspect]
     Active Substance: METHOTREXATE
     Dates: end: 20180707

REACTIONS (7)
  - Unresponsive to stimuli [None]
  - Thrombosis [None]
  - Tremor [None]
  - Visual impairment [None]
  - Loss of consciousness [None]
  - Fall [None]
  - Partial seizures [None]

NARRATIVE: CASE EVENT DATE: 20180722
